FAERS Safety Report 10414273 (Version 5)
Quarter: 2014Q3

REPORT INFORMATION
  Report Type: Report from Study
  Country: DE (occurrence: DE)
  Receive Date: 20140828
  Receipt Date: 20140929
  Transmission Date: 20150326
  Serious: Yes (Hospitalization)
  Sender: FDA-Public Use
  Company Number: DE-ROCHE-1453904

PATIENT
  Age: 64 Year
  Sex: Female
  Weight: 84 kg

DRUGS (15)
  1. DOXORUBICIN [Suspect]
     Active Substance: DOXORUBICIN
     Indication: OVARIAN CANCER
     Dosage: DATE OF LAST DOSE PRIOR TO SAE: 17/JUL/2014
     Route: 042
     Dates: start: 20140522, end: 20140909
  2. CARBOPLATIN. [Suspect]
     Active Substance: CARBOPLATIN
     Indication: OVARIAN CANCER
     Dosage: UNIT DOSE: 5 AUC AND  DATE OF LAST DOSE PRIOR TO SAE: 17/JUL/2014
     Route: 042
     Dates: start: 20140522, end: 20140909
  3. LECARNIDIPINO [Concomitant]
     Route: 048
     Dates: start: 20130709, end: 20140817
  4. METRONIDAZOL [Concomitant]
     Active Substance: METRONIDAZOLE
     Route: 048
     Dates: start: 20140827, end: 20140902
  5. CANDESARTAN [Concomitant]
     Active Substance: CANDESARTAN
     Dosage: UNIT DOSE: 08/12.5 MG
     Route: 048
     Dates: start: 20130709
  6. CEFUROXIM [Concomitant]
     Active Substance: CEFUROXIME
     Route: 048
     Dates: start: 20140827, end: 20140902
  7. METRONIDAZOL [Concomitant]
     Active Substance: METRONIDAZOLE
     Route: 042
     Dates: start: 20140821, end: 20140826
  8. BEVACIZUMAB [Suspect]
     Active Substance: BEVACIZUMAB
     Indication: OVARIAN CANCER
     Dosage: DATE OF LAST DOSE PRIOR TO SAE: 31/JUL/2014
     Route: 042
     Dates: start: 20140522, end: 20140909
  9. BISOPROLOL [Concomitant]
     Active Substance: BISOPROLOL
     Route: 048
     Dates: start: 20130709
  10. HYDROCHLOROTHIAZIDE. [Concomitant]
     Active Substance: HYDROCHLOROTHIAZIDE
     Route: 048
     Dates: start: 20130709
  11. BISOPROLOL [Concomitant]
     Active Substance: BISOPROLOL
     Route: 048
  12. CANDESARTAN [Concomitant]
     Active Substance: CANDESARTAN
     Route: 048
     Dates: start: 20140902, end: 20140904
  13. OMEPRAZOL [Concomitant]
     Active Substance: OMEPRAZOLE
     Route: 065
  14. CEFTRIAXONE. [Concomitant]
     Active Substance: CEFTRIAXONE
     Route: 042
     Dates: start: 20140821, end: 20140826
  15. L-THYROXINE [Concomitant]
     Active Substance: LEVOTHYROXINE
     Indication: GOITRE
     Route: 048
     Dates: start: 201311

REACTIONS (3)
  - Renal failure [Recovered/Resolved]
  - Ileus [Recovered/Resolved]
  - Subileus [Recovering/Resolving]

NARRATIVE: CASE EVENT DATE: 20140819
